FAERS Safety Report 11560250 (Version 1)
Quarter: 2015Q3

REPORT INFORMATION
  Report Type: Spontaneous
  Country: US (occurrence: US)
  Receive Date: 20150916
  Receipt Date: 20150916
  Transmission Date: 20151125
  Serious: No
  Sender: FDA-Public Use
  Company Number: US-ELI_LILLY_AND_COMPANY-US200809003546

PATIENT
  Age: 51 Year
  Sex: Male
  Weight: 102.95 kg

DRUGS (7)
  1. VITAMIN D [Concomitant]
     Active Substance: CHOLECALCIFEROL
     Dosage: 50000 U, WEEKLY (1/W)
  2. LEVAQUIN [Concomitant]
     Active Substance: LEVOFLOXACIN
  3. TYLENOL PM [Concomitant]
     Active Substance: ACETAMINOPHEN\DIPHENHYDRAMINE
     Dosage: 1 D/F, EACH EVENING
  4. TETRACYCLINE [Concomitant]
     Active Substance: TETRACYCLINE
     Indication: SEMINAL VESICULAR INFECTION
  5. FORTEO [Suspect]
     Active Substance: TERIPARATIDE
     Indication: OSTEOPOROSIS
     Dosage: 20 UG, DAILY (1/D)
     Dates: start: 200804, end: 200805
  6. NEXIUM [Concomitant]
     Active Substance: ESOMEPRAZOLE MAGNESIUM
  7. AUGMENTIN [Concomitant]
     Active Substance: AMOXICILLIN\CLAVULANATE POTASSIUM

REACTIONS (12)
  - Pain in extremity [Unknown]
  - Gait disturbance [Recovering/Resolving]
  - Fluid retention [Unknown]
  - Coeliac disease [Unknown]
  - Myalgia [Recovering/Resolving]
  - Spinal pain [Unknown]
  - Aspartate aminotransferase increased [Unknown]
  - Atrial hypertrophy [Unknown]
  - Oedema [Recovered/Resolved]
  - Hepatic steatosis [Unknown]
  - Ventricular hypertrophy [Unknown]
  - Diabetes mellitus [Not Recovered/Not Resolved]

NARRATIVE: CASE EVENT DATE: 2008
